FAERS Safety Report 9818044 (Version 1)
Quarter: 2014Q1

REPORT INFORMATION
  Report Type: Spontaneous
  Country: US (occurrence: US)
  Receive Date: 20140115
  Receipt Date: 20140115
  Transmission Date: 20141002
  Serious: Yes (Other)
  Sender: FDA-Public Use
  Company Number: US-ASTRAZENECA-2014SE01203

PATIENT
  Age: 79 Year
  Sex: Female

DRUGS (9)
  1. SYMBICORT [Suspect]
     Indication: CHRONIC OBSTRUCTIVE PULMONARY DISEASE
     Dosage: 80 4.5 MCG 2 PUFFS BID
     Route: 055
  2. SYMBICORT [Suspect]
     Indication: CHRONIC OBSTRUCTIVE PULMONARY DISEASE
     Dosage: 80 4.5 MCG 1 PUFF BID
     Route: 055
  3. HYDROCHLOROTHIAZIDE [Suspect]
     Indication: BLOOD PRESSURE ABNORMAL
     Route: 048
  4. NASONEX [Concomitant]
     Indication: SINUS DISORDER
     Dosage: 50 MCG 2 SQUIRTS BID
     Route: 045
  5. NASONEX [Concomitant]
     Indication: PAIN
     Dosage: 50 MCG 2 SQUIRTS BID
     Route: 045
  6. NASONEX [Concomitant]
     Indication: SINUS DISORDER
     Dosage: 50 MCG 1 SQUIRT BID
     Route: 045
  7. NASONEX [Concomitant]
     Indication: PAIN
     Dosage: 50 MCG 1 SQUIRT BID
     Route: 045
  8. CALCIUM WITH VITAMIN D [Concomitant]
     Indication: OSTEOPENIA
     Dosage: DAILY
     Route: 048
  9. DAILY VITAMINS [Concomitant]
     Dosage: DAILY
     Route: 048

REACTIONS (18)
  - Angiopathy [Unknown]
  - Dyspnoea [Recovered/Resolved]
  - Dyspnoea [Recovered/Resolved]
  - Myalgia [Not Recovered/Not Resolved]
  - Discomfort [Recovered/Resolved]
  - Nasal septum deviation [Unknown]
  - Nasal mucosal disorder [Recovered/Resolved]
  - Weight decreased [Not Recovered/Not Resolved]
  - Fall [Recovered/Resolved]
  - Paronychia [Recovered/Resolved]
  - Rhinorrhoea [Not Recovered/Not Resolved]
  - Epistaxis [Not Recovered/Not Resolved]
  - Aphonia [Not Recovered/Not Resolved]
  - Dysphonia [Not Recovered/Not Resolved]
  - Muscle spasms [Recovered/Resolved]
  - Intentional drug misuse [Unknown]
  - Off label use [Not Recovered/Not Resolved]
  - Off label use [Not Recovered/Not Resolved]
